FAERS Safety Report 18178049 (Version 4)
Quarter: 2020Q4

REPORT INFORMATION
  Report Type: Spontaneous
  Country: US (occurrence: US)
  Receive Date: 20200821
  Receipt Date: 20201113
  Transmission Date: 20210113
  Serious: No
  Sender: FDA-Public Use
  Company Number: US-LUPIN PHARMACEUTICALS INC.-2020-04524

PATIENT
  Age: 67 Year
  Sex: Female
  Weight: 58.05 kg

DRUGS (1)
  1. METFORMIN HYDROCHLORIDE EXTENDED RELEASE TABLET USP 500 MG [Suspect]
     Active Substance: METFORMIN HYDROCHLORIDE
     Indication: DIABETES MELLITUS
     Dosage: 1000 MILLIGRAM, BID (2 TABLETS OF 500 MG EVERY MORNING AND 2 TABLETS EVERY EVENING)
     Route: 048
     Dates: start: 20200620

REACTIONS (2)
  - No adverse event [Unknown]
  - Recalled product administered [Unknown]

NARRATIVE: CASE EVENT DATE: 20200620
